FAERS Safety Report 21945588 (Version 1)
Quarter: 2023Q1

REPORT INFORMATION
  Report Type: Spontaneous
  Country: None (occurrence: GB)
  Receive Date: 20230202
  Receipt Date: 20230202
  Transmission Date: 20230418
  Serious: Yes (Death)
  Sender: FDA-Public Use
  Company Number: GB-Breckenridge Pharmaceutical, Inc.-2137427

PATIENT
  Sex: Male

DRUGS (3)
  1. OMEPRAZOLE [Suspect]
     Active Substance: OMEPRAZOLE
  2. DEXAMETHASONE [Concomitant]
     Active Substance: DEXAMETHASONE
  3. ZYTIGA [Concomitant]
     Active Substance: ABIRATERONE ACETATE

REACTIONS (1)
  - Death [Fatal]
